FAERS Safety Report 4390063-4 (Version None)
Quarter: 2004Q2

REPORT INFORMATION
  Report Type: 
  Country: None (occurrence: None)
  Receive Date: 20040630
  Receipt Date: 20040622
  Transmission Date: 20050107
  Serious: Yes (Other)
  Sender: FDA-Public Use
  Company Number: US-JNJFOC-20040502825

PATIENT
  Age: 36 Year
  Sex: Female
  Weight: 95.2554 kg

DRUGS (7)
  1. RISPERDAL CONSTA [Suspect]
     Indication: SCHIZOPHRENIA
     Dosage: 25 MG, INTRAMUSCULAR
     Route: 030
     Dates: start: 20040303
  2. RISPERDAL [Suspect]
     Indication: DRUG USE FOR UNKNOWN INDICATION
     Dosage: 7 MG, IN 1 DAY , ORAL
     Route: 048
     Dates: end: 20040501
  3. LIPITOR [Concomitant]
  4. ACTOS (PIOGLITAZONE) [Concomitant]
  5. INSULIN [Concomitant]
  6. GLIPIZIDE [Concomitant]
  7. PRINIVIL [Concomitant]

REACTIONS (3)
  - ABORTION INDUCED [None]
  - DRUG EXPOSURE DURING PREGNANCY [None]
  - ECTOPIC PREGNANCY [None]
